FAERS Safety Report 12976793 (Version 2)
Quarter: 2016Q4

REPORT INFORMATION
  Report Type: Report from Study
  Country: ES (occurrence: ES)
  Receive Date: 20161128
  Receipt Date: 20161202
  Transmission Date: 20170207
  Serious: Yes (Death, Hospitalization, Other)
  Sender: FDA-Public Use
  Company Number: PHHY2016ES158862

PATIENT
  Age: 65 Year
  Sex: Male

DRUGS (1)
  1. LDK378 [Suspect]
     Active Substance: CERITINIB
     Indication: LUNG NEOPLASM MALIGNANT
     Dosage: 750 MG, QD
     Route: 065
     Dates: start: 20161102, end: 20161108

REACTIONS (5)
  - Renal failure [Recovered/Resolved]
  - Malignant neoplasm progression [Fatal]
  - Respiratory tract infection [Recovered/Resolved]
  - Sepsis [Unknown]
  - Lung neoplasm malignant [Fatal]

NARRATIVE: CASE EVENT DATE: 20161108
